FAERS Safety Report 19146020 (Version 2)
Quarter: 2021Q2

REPORT INFORMATION
  Report Type: Spontaneous
  Country: CN (occurrence: CN)
  Receive Date: 20210416
  Receipt Date: 20210422
  Transmission Date: 20210717
  Serious: Yes (Other)
  Sender: FDA-Public Use
  Company Number: CN-TEVA-2021-CN-1898537

PATIENT
  Age: 46 Year
  Sex: Female

DRUGS (2)
  1. ACITRETIN UNK [Suspect]
     Active Substance: ACITRETIN
     Indication: CUTANEOUS SARCOIDOSIS
     Dosage: 10 MILLIGRAM DAILY; 10 MG, QD
     Route: 048
  2. HYDROXYCHLOROQUINE [Suspect]
     Active Substance: HYDROXYCHLOROQUINE
     Indication: CUTANEOUS SARCOIDOSIS
     Dosage: 400 MILLIGRAM DAILY; 200 MG, BID
     Route: 065

REACTIONS (3)
  - Drug ineffective for unapproved indication [Unknown]
  - Off label use [Unknown]
  - Cutaneous sarcoidosis [Not Recovered/Not Resolved]
